FAERS Safety Report 8664732 (Version 3)
Quarter: 2014Q3

REPORT INFORMATION
  Report Type: Spontaneous
  Country: DK (occurrence: CA)
  Receive Date: 20120713
  Receipt Date: 20140922
  Transmission Date: 20150326
  Serious: Yes (Death)
  Sender: FDA-Public Use
  Company Number: CA-FRI-1000037008

PATIENT
  Age: 75 Year
  Sex: Female

DRUGS (3)
  1. APO-TRIAZIDE [Concomitant]
     Dosage: 25 MG/50 MG
  2. ESCITALOPRAM [Suspect]
     Active Substance: ESCITALOPRAM OXALATE
     Indication: DEPRESSION
     Route: 048
     Dates: start: 20111210, end: 20111210
  3. LORAZEPAM. [Concomitant]
     Active Substance: LORAZEPAM
     Dosage: DAILY DOSE NOT REPORTED
     Route: 048

REACTIONS (15)
  - Chest pain [Fatal]
  - Myocardial infarction [Fatal]
  - Pain in extremity [Fatal]
  - Amnesia [Fatal]
  - Activities of daily living impaired [Fatal]
  - Hyperacusis [Fatal]
  - Social fear [Fatal]
  - Crying [Fatal]
  - Insomnia [Fatal]
  - Drug dependence [Fatal]
  - Fatigue [Fatal]
  - Hyponatraemia [Fatal]
  - Confusional state [Fatal]
  - Torsade de pointes [Fatal]
  - Balance disorder [Fatal]

NARRATIVE: CASE EVENT DATE: 20111210
